FAERS Safety Report 5370511-3 (Version None)
Quarter: 2007Q2

REPORT INFORMATION
  Report Type: 
  Country: None (occurrence: None)
  Receive Date: 20070625
  Receipt Date: 20070625
  Transmission Date: 20071010
  Serious: Yes (Life-Threatening)
  Sender: FDA-Public Use
  Company Number: None

PATIENT
  Sex: Male
  Weight: 74 kg

DRUGS (20)
  1. BEVACIZUMAB Q 3 WEEKS [Suspect]
     Indication: OESOPHAGEAL CANCER METASTATIC
     Dosage: 10MG/M2 IV BOLUS
     Route: 040
     Dates: start: 20061110, end: 20070615
  2. DOCETAXEL D1,D8 OF 21D CYCLE [Suspect]
     Indication: OESOPHAGEAL CANCER METASTATIC
     Dosage: 30MG/M2 IV BOLUS
     Route: 040
     Dates: start: 20061110, end: 20070615
  3. CISPLATIN [Suspect]
     Indication: OESOPHAGEAL CANCER METASTATIC
     Dosage: 25MG/MG/2 IV BOLUS
     Route: 040
     Dates: start: 20061110, end: 20070615
  4. IRINOTECAN HCL [Suspect]
     Indication: OESOPHAGEAL CANCER METASTATIC
     Dosage: 50MG/M2 IV BOLUS
     Route: 040
     Dates: start: 20061110, end: 20070601
  5. ALBUTEROL [Concomitant]
  6. ALPRAZOLAM [Concomitant]
  7. ASPIRIN [Concomitant]
  8. ATIVAN [Concomitant]
  9. BENADRYL [Concomitant]
  10. CHOLINE MAG. TRISALICYLATE [Concomitant]
  11. CLARITIN-D [Concomitant]
  12. COMPAZINE [Concomitant]
  13. DECADRON [Concomitant]
  14. FENTANYL [Concomitant]
  15. FLUOXETINE [Concomitant]
  16. LIPITOR [Concomitant]
  17. OMEPRAZOLE [Concomitant]
  18. ROBITUSSIN AC [Concomitant]
  19. ROXICET [Concomitant]
  20. ZOFRAN [Concomitant]

REACTIONS (9)
  - BLOOD PRESSURE SYSTOLIC DECREASED [None]
  - CHEST DISCOMFORT [None]
  - DIZZINESS [None]
  - EPIGASTRIC DISCOMFORT [None]
  - FALL [None]
  - FLUSHING [None]
  - INFUSION RELATED REACTION [None]
  - LOSS OF CONSCIOUSNESS [None]
  - OXYGEN SATURATION DECREASED [None]
